FAERS Safety Report 18100569 (Version 2)
Quarter: 2020Q3

REPORT INFORMATION
  Report Type: Report from Study
  Country: None (occurrence: FR)
  Receive Date: 20200801
  Receipt Date: 20200902
  Transmission Date: 20201103
  Serious: Yes (Hospitalization, Other)
  Sender: FDA-Public Use
  Company Number: FR-ABBVIE-17P-056-3084388-00

PATIENT
  Age: 16 Year
  Sex: Male
  Weight: 55 kg

DRUGS (9)
  1. ETOPOSIDE. [Concomitant]
     Active Substance: ETOPOSIDE
     Indication: LYMPHOMA
     Dosage: 170 MG PER PROTOCOL
     Route: 042
     Dates: start: 20170729, end: 20170904
  2. DEXAMETHASONE. [Concomitant]
     Active Substance: DEXAMETHASONE
     Indication: LYMPHOMA
     Dosage: PER PROTOCOL
     Route: 042
     Dates: start: 20170731, end: 20170909
  3. CARBOPLATIN. [Concomitant]
     Active Substance: CARBOPLATIN
     Indication: LYMPHOMA
     Dosage: 1100 MG PER PROTOCOL
     Route: 042
     Dates: start: 20170729, end: 20170902
  4. METHOTREXATE. [Concomitant]
     Active Substance: METHOTREXATE
     Indication: LYMPHOMA
     Dosage: PER PROTOCOL
     Route: 037
     Dates: start: 20170727, end: 20170905
  5. CYTARABINE. [Concomitant]
     Active Substance: CYTARABINE
     Indication: LYMPHOMA
     Dosage: PER PROTOCOL
     Route: 037
     Dates: start: 20170727, end: 20170905
  6. IBRUTINIB [Suspect]
     Active Substance: IBRUTINIB
     Indication: LYMPHOMA
     Route: 048
     Dates: start: 20170728
  7. IFOSFAMIDE. [Concomitant]
     Active Substance: IFOSFAMIDE
     Indication: LYMPHOMA
     Dosage: 5200 MG PER PROTOCOL
     Route: 042
     Dates: start: 20170727, end: 20170904
  8. HYDROCORTISONE. [Concomitant]
     Active Substance: HYDROCORTISONE
     Indication: LYMPHOMA
     Dosage: PER PROTOCOL
     Route: 037
     Dates: start: 20170727, end: 20170905
  9. RITUXIMAB. [Concomitant]
     Active Substance: RITUXIMAB
     Indication: LYMPHOMA
     Dosage: 375 MG/M2 = 650 MG ER PROTOCOL
     Route: 042
     Dates: start: 20170727, end: 20170902

REACTIONS (10)
  - Capillary leak syndrome [Recovered/Resolved]
  - Gastric ulcer [Recovered/Resolved]
  - Thrombocytopenia [Recovered/Resolved]
  - Platelet count decreased [Recovered/Resolved]
  - Pneumonia [Recovered/Resolved]
  - Febrile neutropenia [Recovered/Resolved]
  - Klebsiella sepsis [Recovered/Resolved]
  - Escherichia sepsis [Recovered/Resolved]
  - Stomatitis [Recovered/Resolved]
  - Pneumomediastinum [Recovered/Resolved]

NARRATIVE: CASE EVENT DATE: 20170806
